FAERS Safety Report 6669037-6 (Version None)
Quarter: 2010Q2

REPORT INFORMATION
  Report Type: 
  Country: None (occurrence: None)
  Receive Date: 20100406
  Receipt Date: 20100329
  Transmission Date: 20101027
  Serious: Yes (Hospitalization, Other)
  Sender: FDA-Public Use
  Company Number: US-SANOFI-AVENTIS-2010SA012296

PATIENT
  Age: 69 Year
  Sex: Female
  Weight: 79.37 kg

DRUGS (2)
  1. LANTUS [Suspect]
     Dosage: DOSE:36 UNIT(S)
     Route: 058
     Dates: start: 20080101
  2. OPTICLICK [Suspect]
     Dosage: CONSUMER USING LANTUS SOLOSTAR WHILE HOSPITALIZED.
     Dates: start: 20080101

REACTIONS (1)
  - TRANSIENT ISCHAEMIC ATTACK [None]
